FAERS Safety Report 6869054-7 (Version None)
Quarter: 2010Q3

REPORT INFORMATION
  Report Type: 
  Country: None (occurrence: None)
  Receive Date: 20100722
  Receipt Date: 20100715
  Transmission Date: 20110219
  Serious: Yes (Hospitalization)
  Sender: FDA-Public Use
  Company Number: DE-ABBOTT-10P-062-0637758-00

PATIENT
  Sex: Female

DRUGS (2)
  1. HUMIRA [Suspect]
     Indication: CROHN'S DISEASE
     Dates: start: 20080724, end: 20091215
  2. MESALAZIN [Concomitant]
     Indication: CROHN'S DISEASE

REACTIONS (2)
  - ILEAL STENOSIS [None]
  - LEUKOCYTOSIS [None]
